FAERS Safety Report 5000420-0 (Version None)
Quarter: 2006Q2

REPORT INFORMATION
  Report Type: 
  Country: None (occurrence: None)
  Receive Date: 20060509
  Receipt Date: 20060428
  Transmission Date: 20061013
  Serious: Yes (Hospitalization)
  Sender: FDA-Public Use
  Company Number: 2006058324

PATIENT
  Age: 50 Year
  Sex: Male

DRUGS (2)
  1. LIPITOR [Suspect]
     Indication: DYSLIPIDAEMIA
     Dosage: 10 MG (10 MG, 1 IN 1 D), ORAL
     Route: 048
     Dates: start: 20010901
  2. INDERAL [Concomitant]

REACTIONS (2)
  - INTERVERTEBRAL DISC OPERATION [None]
  - SURGICAL PROCEDURE REPEATED [None]
